FAERS Safety Report 7782102-5 (Version None)
Quarter: 2011Q3

REPORT INFORMATION
  Report Type: 
  Country: None (occurrence: None)
  Receive Date: 20110927
  Receipt Date: 20110915
  Transmission Date: 20111222
  Serious: Yes (Hospitalization)
  Sender: FDA-Public Use
  Company Number: US-ELI_LILLY_AND_COMPANY-US200901002247

PATIENT
  Sex: Male

DRUGS (4)
  1. LANTUS [Concomitant]
  2. HUMALOG [Suspect]
  3. HUMALOG [Suspect]
     Indication: TYPE 1 DIABETES MELLITUS
     Dosage: UNK, PRN
  4. PLAVIX [Concomitant]

REACTIONS (12)
  - CATARACT [None]
  - VISUAL ACUITY REDUCED [None]
  - STENT PLACEMENT [None]
  - NASOPHARYNGITIS [None]
  - MALAISE [None]
  - DEPRESSED MOOD [None]
  - DRUG INEFFECTIVE [None]
  - CORONARY ARTERY OCCLUSION [None]
  - BLOOD GLUCOSE DECREASED [None]
  - BLOOD GLUCOSE INCREASED [None]
  - NERVOUSNESS [None]
  - ANXIETY [None]
